FAERS Safety Report 20880234 (Version 1)
Quarter: 2022Q2

REPORT INFORMATION
  Report Type: Spontaneous
  Country: US (occurrence: US)
  Receive Date: 20220526
  Receipt Date: 20220526
  Transmission Date: 20220721
  Serious: No
  Sender: FDA-Public Use
  Company Number: US-RADIUS HEALTH INC.-2021US001940

PATIENT
  Age: 83 Year
  Sex: Female

DRUGS (4)
  1. TYMLOS [Suspect]
     Active Substance: ABALOPARATIDE
     Indication: Atypical fracture
     Dosage: 80 MCG, QD
     Route: 058
     Dates: start: 20210430
  2. PREDNISONE [Concomitant]
     Active Substance: PREDNISONE
     Indication: Product used for unknown indication
     Dosage: UNK
     Route: 065
     Dates: end: 2021
  3. TAXOL [Concomitant]
     Active Substance: PACLITAXEL
     Indication: Breast cancer
  4. ONTRUZANT [Concomitant]
     Active Substance: TRASTUZUMAB-DTTB
     Indication: Breast cancer

REACTIONS (4)
  - Blood glucose increased [Recovered/Resolved]
  - Injection site pain [Not Recovered/Not Resolved]
  - Off label use [Not Recovered/Not Resolved]
  - Product quality issue [Recovered/Resolved]

NARRATIVE: CASE EVENT DATE: 20210430
